FAERS Safety Report 23660760 (Version 1)
Quarter: 2024Q1

REPORT INFORMATION
  Report Type: Spontaneous
  Country: US (occurrence: US)
  Receive Date: 20240322
  Receipt Date: 20240322
  Transmission Date: 20240410
  Serious: No
  Sender: FDA-Public Use
  Company Number: US-ABBVIE-5679302

PATIENT
  Age: 55 Year
  Sex: Female

DRUGS (1)
  1. HUMIRA [Suspect]
     Active Substance: ADALIMUMAB
     Indication: Rheumatoid arthritis
     Dosage: FORM STRENGTH: 40 MILLIGRAM
     Route: 058
     Dates: start: 202312

REACTIONS (9)
  - Injection site urticaria [Not Recovered/Not Resolved]
  - Injection site erythema [Recovering/Resolving]
  - Injection site pain [Recovering/Resolving]
  - Injection site discharge [Not Recovered/Not Resolved]
  - Injection site pruritus [Recovering/Resolving]
  - Injection site haemorrhage [Recovered/Resolved]
  - Rheumatoid arthritis [Not Recovered/Not Resolved]
  - COVID-19 [Not Recovered/Not Resolved]
  - Asthenia [Not Recovered/Not Resolved]

NARRATIVE: CASE EVENT DATE: 20240310
